FAERS Safety Report 6887559-X (Version None)
Quarter: 2010Q3

REPORT INFORMATION
  Report Type: 
  Country: None (occurrence: None)
  Receive Date: 20100730
  Receipt Date: 20100720
  Transmission Date: 20110219
  Serious: Yes (Death)
  Sender: FDA-Public Use
  Company Number: US-JNJCH-2010016829

PATIENT
  Sex: Male

DRUGS (1)
  1. BENGAY [Suspect]
     Indication: INTERVERTEBRAL DISC DEGENERATION
     Dosage: TEXT:UNKNOWN
     Route: 061

REACTIONS (3)
  - DEATH [None]
  - EXPIRED DRUG ADMINISTERED [None]
  - OFF LABEL USE [None]
